FAERS Safety Report 12220648 (Version 2)
Quarter: 2016Q2

REPORT INFORMATION
  Report Type: Spontaneous
  Country: JP (occurrence: JP)
  Receive Date: 20160330
  Receipt Date: 20160525
  Transmission Date: 20160815
  Serious: Yes (Congenital Anomaly)
  Sender: FDA-Public Use
  Company Number: PHJP2016JP007070

PATIENT
  Sex: Male
  Weight: 3.45 kg

DRUGS (3)
  1. REMICADE [Suspect]
     Active Substance: INFLIXIMAB
     Indication: PRODUCT USED FOR UNKNOWN INDICATION
     Dosage: DRUG EXPOSURE IN AN INFANT VIA FATHER
     Route: 064
     Dates: start: 20150421
  2. DOVOBET [Suspect]
     Active Substance: BETAMETHASONE\CALCIPOTRIENE
     Indication: PRODUCT USED FOR UNKNOWN INDICATION
     Dosage: DRUG EXPOSURE IN AN INFANT VIA FATHER
     Route: 064
     Dates: start: 20150323, end: 20150421
  3. NEORAL [Suspect]
     Active Substance: CYCLOSPORINE
     Indication: PRODUCT USED FOR UNKNOWN INDICATION
     Dosage: DRUG EXPOSURE IN AN INFANT VIA FATHER
     Route: 064
     Dates: start: 20150323, end: 20150421

REACTIONS (2)
  - Cytogenetic abnormality [Unknown]
  - Exposure via father [Unknown]

NARRATIVE: CASE EVENT DATE: 20160116
